FAERS Safety Report 9180129 (Version 1)
Quarter: 2012Q4

REPORT INFORMATION
  Report Type: 
  Country: US (occurrence: US)
  Receive Date: 20121029
  Receipt Date: 20121029
  Transmission Date: 20130627
  Serious: Yes (Other)
  Sender: FDA-Public Use
  Company Number: US-PFIZER INC-2012269491

PATIENT
  Age: 59 Year
  Sex: Female
  Weight: 90.7 kg

DRUGS (2)
  1. PRISTIQ [Suspect]
     Indication: DEPRESSION
     Dosage: UNK, daily
  2. XANAX [Concomitant]
     Indication: INSOMNIA
     Dosage: UNK

REACTIONS (2)
  - Ligament rupture [Unknown]
  - Meniscus injury [Unknown]
